FAERS Safety Report 9945344 (Version 1)
Quarter: 2014Q1

REPORT INFORMATION
  Report Type: Report from Study
  Country: US (occurrence: US)
  Receive Date: 20140303
  Receipt Date: 20140303
  Transmission Date: 20141002
  Serious: No
  Sender: FDA-Public Use
  Company Number: US-ABBVIE-13P-163-1049378-00

PATIENT
  Age: 50 Year
  Sex: Female

DRUGS (13)
  1. HUMIRA [Suspect]
     Indication: COLITIS ULCERATIVE
     Dates: start: 20121025
  2. ASACOL [Concomitant]
     Indication: COLITIS
  3. METFORMIN [Concomitant]
     Indication: DIABETES MELLITUS
  4. TOPROL [Concomitant]
     Indication: CARDIAC FAILURE CONGESTIVE
  5. ACTOS [Concomitant]
     Indication: DIABETES MELLITUS
  6. GLIMEPIRIDE [Concomitant]
     Indication: DIABETES MELLITUS
  7. FLUOXETINE [Concomitant]
     Indication: DEPRESSION
  8. FLUOXETINE [Concomitant]
     Dosage: AT NIGHT
  9. FENOFIBRATE [Concomitant]
     Indication: BLOOD CHOLESTEROL
  10. SIMVASTATIN [Concomitant]
     Indication: BLOOD CHOLESTEROL
  11. ASA [Concomitant]
     Indication: CARDIAC FAILURE CONGESTIVE
  12. FUROSEMIDE [Concomitant]
     Indication: CARDIAC FAILURE
  13. LISINOPRIL [Concomitant]
     Indication: BLOOD PRESSURE

REACTIONS (1)
  - Injection site pain [Recovered/Resolved]
